FAERS Safety Report 14493569 (Version 1)
Quarter: 2018Q1

REPORT INFORMATION
  Report Type: Spontaneous
  Country: BR (occurrence: BR)
  Receive Date: 20180206
  Receipt Date: 20180206
  Transmission Date: 20180509
  Serious: Yes (Hospitalization)
  Sender: FDA-Public Use
  Company Number: BR-ELI_LILLY_AND_COMPANY-BR201801013181

PATIENT
  Sex: Female
  Weight: 62 kg

DRUGS (5)
  1. GEMZAR [Suspect]
     Active Substance: GEMCITABINE HYDROCHLORIDE
     Indication: BREAST CANCER FEMALE
     Dosage: 1264.5 MG, CYCLICAL
     Route: 042
  2. CORUS H [Concomitant]
     Active Substance: HYDROCHLOROTHIAZIDE\LOSARTAN POTASSIUM
     Indication: PRODUCT USED FOR UNKNOWN INDICATION
     Dosage: UNK, UNKNOWN
     Route: 065
  3. DRAMIN B6 [Concomitant]
     Indication: PRODUCT USED FOR UNKNOWN INDICATION
     Dosage: UNK, UNKNOWN
     Route: 065
  4. FAULDCISPLA [Concomitant]
     Active Substance: CISPLATIN
     Indication: BREAST CANCER FEMALE
     Dosage: 50.58 MG, CYCLICAL
     Route: 065
  5. OMEPRAZOL                          /00661201/ [Concomitant]
     Active Substance: OMEPRAZOLE
     Indication: PRODUCT USED FOR UNKNOWN INDICATION
     Dosage: UNK, UNKNOWN
     Route: 065

REACTIONS (7)
  - General physical health deterioration [Recovered/Resolved]
  - Decreased appetite [Unknown]
  - Jaundice [Unknown]
  - Disorientation [Recovered/Resolved]
  - Dehydration [Unknown]
  - Neutropenia [Recovered/Resolved]
  - Thrombocytopenia [Unknown]
